FAERS Safety Report 4952879-2 (Version None)
Quarter: 2006Q1

REPORT INFORMATION
  Report Type: 
  Country: None (occurrence: None)
  Receive Date: 20060320
  Receipt Date: 20060309
  Transmission Date: 20060701
  Serious: Yes (Other)
  Sender: FDA-Public Use
  Company Number: 2006034524

PATIENT
  Sex: Female

DRUGS (2)
  1. ZOLOFT [Suspect]
     Indication: ILL-DEFINED DISORDER
     Dosage: UNKNOWN
     Route: 065
  2. CELEBREX [Suspect]
     Indication: BACK PAIN
     Dosage: UNKNOWN
     Route: 065
     Dates: start: 19990801

REACTIONS (8)
  - ADENOTONSILLECTOMY [None]
  - CLAVICLE FRACTURE [None]
  - DRUG EXPOSURE DURING PREGNANCY [None]
  - DRUG EXPOSURE VIA BREAST MILK [None]
  - HYPERSENSITIVITY [None]
  - MOOD ALTERED [None]
  - NASOPHARYNGITIS [None]
  - NEONATAL DISORDER [None]
